FAERS Safety Report 9201838 (Version 4)
Quarter: 2013Q2

REPORT INFORMATION
  Report Type: Report from Study
  Country: CA (occurrence: CA)
  Receive Date: 20130401
  Receipt Date: 20130502
  Transmission Date: 20140414
  Serious: Yes (Death, Hospitalization)
  Sender: FDA-Public Use
  Company Number: CA-ROCHE-1208162

PATIENT
  Age: 19 Year
  Sex: Male
  Weight: 66 kg

DRUGS (3)
  1. AVASTIN [Suspect]
     Indication: MALIGNANT GLIOMA
     Route: 042
     Dates: start: 20130128, end: 20130211
  2. DECADRON [Concomitant]
  3. ZANTAC [Concomitant]

REACTIONS (2)
  - Death [Fatal]
  - Pneumothorax spontaneous [Unknown]
